FAERS Safety Report 19738536 (Version 1)
Quarter: 2021Q3

REPORT INFORMATION
  Report Type: Spontaneous
  Country: US (occurrence: US)
  Receive Date: 20210824
  Receipt Date: 20210824
  Transmission Date: 20211014
  Serious: No
  Sender: FDA-Public Use
  Company Number: US-GLAXOSMITHKLINE-US2021176057

PATIENT
  Age: 56 Year
  Sex: Female

DRUGS (1)
  1. FLONASE [Suspect]
     Active Substance: FLUTICASONE PROPIONATE
     Indication: HYPERSENSITIVITY
     Dosage: UNK, ONE TO TWO PUFFS PER NOSTRIL
     Dates: start: 2021

REACTIONS (1)
  - Blood triglycerides increased [Recovered/Resolved with Sequelae]

NARRATIVE: CASE EVENT DATE: 2021
